FAERS Safety Report 4357468-9 (Version None)
Quarter: 2004Q2

REPORT INFORMATION
  Report Type: 
  Country: None (occurrence: None)
  Receive Date: 20040511
  Receipt Date: 20040511
  Transmission Date: 20050107
  Serious: Yes (Hospitalization)
  Sender: FDA-Public Use
  Company Number: None

PATIENT
  Age: 63 Year
  Sex: Female
  Weight: 83.5 kg

DRUGS (9)
  1. VIOXX [Suspect]
     Indication: PAIN
     Dosage: 50 MG PO QD { 1 YR
     Route: 048
  2. MS CONTIN [Concomitant]
  3. ORPHENADRINE HYDROCHLORIDE FILM TAB [Concomitant]
  4. ZYPREXA [Concomitant]
  5. NEURONTIN [Concomitant]
  6. PREVACID [Concomitant]
  7. TAMOXIFEN CITRATE [Concomitant]
  8. TIZANIDINE HCL [Concomitant]
  9. HYDROXYZINE [Concomitant]

REACTIONS (2)
  - GASTROINTESTINAL HAEMORRHAGE [None]
  - MENTAL STATUS CHANGES [None]
